FAERS Safety Report 7014883-2 (Version None)
Quarter: 2010Q3

REPORT INFORMATION
  Report Type: 
  Country: None (occurrence: None)
  Receive Date: 20100927
  Receipt Date: 20100716
  Transmission Date: 20110219
  Serious: No
  Sender: FDA-Public Use
  Company Number: US-ASTRAZENECA-2007UW19444

PATIENT
  Age: 59 Year
  Sex: Female
  Weight: 109.8 kg

DRUGS (7)
  1. ARIMIDEX [Suspect]
     Indication: BREAST CANCER
     Route: 048
     Dates: start: 20060101
  2. ACIPHEX [Concomitant]
  3. LISINOPRIL [Concomitant]
  4. DILTIAZEM [Concomitant]
  5. VITAMIN D [Concomitant]
  6. ZYRTEC [Concomitant]
  7. ASPIRIN [Concomitant]

REACTIONS (10)
  - ARTHRALGIA [None]
  - BODY HEIGHT DECREASED [None]
  - BONE PAIN [None]
  - CRYING [None]
  - HEADACHE [None]
  - HOT FLUSH [None]
  - INSOMNIA [None]
  - IRRITABILITY [None]
  - NAUSEA [None]
  - PRURITUS [None]
